FAERS Safety Report 5926979-4 (Version None)
Quarter: 2008Q4

REPORT INFORMATION
  Report Type: 
  Country: None (occurrence: None)
  Receive Date: 20081021
  Receipt Date: 20081021
  Transmission Date: 20090506
  Serious: Yes (Life-Threatening, Other)
  Sender: FDA-Public Use
  Company Number: None

PATIENT
  Age: 61 Year
  Sex: Female
  Weight: 72.1219 kg

DRUGS (1)
  1. PREVACID [Suspect]
     Indication: HELICOBACTER INFECTION
     Dosage: ONE CAPSULE DAILY WITH BREAKFA
     Dates: start: 20080919, end: 20081004

REACTIONS (5)
  - DYSPNOEA [None]
  - ERYTHEMA [None]
  - FEELING HOT [None]
  - PRURITUS [None]
  - SKIN BURNING SENSATION [None]
